FAERS Safety Report 11687142 (Version 2)
Quarter: 2015Q4

REPORT INFORMATION
  Report Type: Report from Study
  Country: DE (occurrence: DE)
  Receive Date: 20151030
  Receipt Date: 20151217
  Transmission Date: 20160304
  Serious: Yes (Hospitalization)
  Sender: FDA-Public Use
  Company Number: DE-TAKEDA-2015TUS014834

PATIENT
  Age: 59 Year
  Sex: Male

DRUGS (5)
  1. VORTIOXETINE [Suspect]
     Active Substance: VORTIOXETINE
     Indication: PRODUCT USED FOR UNKNOWN INDICATION
     Dosage: 10 MG, QD
     Route: 048
     Dates: start: 20150503, end: 20150519
  2. OLANZAPINE. [Concomitant]
     Active Substance: OLANZAPINE
     Indication: PRODUCT USED FOR UNKNOWN INDICATION
     Dosage: 10 MG, QD
     Route: 048
     Dates: start: 20150502, end: 20150502
  3. OLANZAPINE. [Concomitant]
     Active Substance: OLANZAPINE
     Dosage: 15 MG, QD
     Route: 048
     Dates: start: 20150503
  4. PANTOPRAZOLE [Concomitant]
     Active Substance: PANTOPRAZOLE SODIUM
     Indication: PROPHYLAXIS AGAINST GASTROINTESTINAL ULCER
     Dosage: 40 MG, QD
     Route: 048
  5. VORTIOXETINE [Suspect]
     Active Substance: VORTIOXETINE
     Dosage: 5 MG, QD
     Route: 048
     Dates: start: 20150520

REACTIONS (3)
  - Restlessness [Recovering/Resolving]
  - Depression [Recovering/Resolving]
  - Agitation [Recovering/Resolving]

NARRATIVE: CASE EVENT DATE: 20150505
